FAERS Safety Report 8913339 (Version 1)
Quarter: 2012Q4

REPORT INFORMATION
  Report Type: Spontaneous
  Country: US (occurrence: None)
  Receive Date: 20121114
  Receipt Date: 20121114
  Transmission Date: 20130627
  Serious: Yes (Hospitalization, Other)
  Sender: FDA-Public Use
  Company Number: 2012P1062445

PATIENT
  Age: 90 Year
  Sex: Male

DRUGS (12)
  1. SANTYL OINTMENT (NO PREF. NAME) [Suspect]
     Indication: WOUND TREATMENT
     Route: 061
     Dates: start: 201206, end: 201207
  2. SANTYL OINTMENT (NO PREF. NAME) [Suspect]
     Indication: WOUND TREATMENT
     Route: 061
     Dates: start: 201210, end: 20121029
  3. SANTYL OINTMENT (NO PREF. NAME) [Suspect]
     Indication: WOUND TREATMENT
     Route: 061
     Dates: start: 20121031
  4. CALCIUM ALGINATE [Suspect]
     Indication: WOUND TREATMENT
     Dates: start: 201208
  5. MEDIHONEY [Suspect]
     Indication: WOUND TREATMENT
     Dates: start: 201208
  6. PACERONE [Suspect]
     Indication: ATRIAL FIBRILLATION
     Dates: start: 201210
  7. EXALTA [Suspect]
     Dates: start: 201210
  8. TWO OTHER UNKNOWN ANTIBIOTICS [Suspect]
     Indication: WOUND DRESSING
  9. LOSARTAN [Concomitant]
  10. CARVEDILOL [Concomitant]
  11. SYNTHROID [Concomitant]
  12. FUROSEMIDE [Concomitant]

REACTIONS (8)
  - Application site pain [None]
  - Pneumonia [None]
  - Urinary tract infection [None]
  - Wound complication [None]
  - Atrial fibrillation [None]
  - General physical health deterioration [None]
  - Asthenia [None]
  - Disturbance in attention [None]
